FAERS Safety Report 7059973-3 (Version None)
Quarter: 2010Q4

REPORT INFORMATION
  Report Type: 
  Country: None (occurrence: None)
  Receive Date: 20101025
  Receipt Date: 20101018
  Transmission Date: 20110411
  Serious: Yes (Disabling, Other)
  Sender: FDA-Public Use
  Company Number: US-JNJFOC-20100509551

PATIENT
  Sex: Male
  Weight: 73.48 kg

DRUGS (20)
  1. DOXIL [Suspect]
     Indication: MULTIPLE MYELOMA
     Route: 042
  2. DEXAMETHASONE [Suspect]
     Indication: MULTIPLE MYELOMA
     Route: 042
  3. VELCADE [Suspect]
     Indication: MULTIPLE MYELOMA
     Route: 042
  4. NITROGLYCERIN [Concomitant]
     Route: 065
  5. BYSTOLIC [Concomitant]
     Indication: BLOOD PRESSURE
     Route: 065
  6. RANEXA [Concomitant]
     Route: 065
  7. NORVASC [Concomitant]
     Route: 065
  8. CRESTOR [Concomitant]
     Route: 065
  9. CRESTOR [Concomitant]
     Route: 065
  10. FLOMAX [Concomitant]
     Route: 065
  11. FLOMAX [Concomitant]
     Route: 065
  12. PLAVIX [Concomitant]
     Route: 065
  13. CELEBREX [Concomitant]
     Route: 065
  14. CELEBREX [Concomitant]
     Route: 065
  15. LOVAZA [Concomitant]
     Route: 065
  16. COD LIVER OIL [Concomitant]
     Route: 065
  17. ZETIA [Concomitant]
     Route: 065
  18. ATENOLOL [Concomitant]
     Route: 065
  19. PROVIGIL [Concomitant]
     Route: 065
  20. PROMETHAZINE W/ CODEINE [Concomitant]
     Indication: COUGH
     Route: 065

REACTIONS (1)
  - INTERSTITIAL LUNG DISEASE [None]
